FAERS Safety Report 12185074 (Version 2)
Quarter: 2016Q2

REPORT INFORMATION
  Report Type: Spontaneous
  Country: US (occurrence: US)
  Receive Date: 20160316
  Receipt Date: 20160628
  Transmission Date: 20160815
  Serious: Yes (Other)
  Sender: FDA-Public Use
  Company Number: US-BAYER-2016-051120

PATIENT
  Age: 29 Year
  Sex: Female
  Weight: 57 kg

DRUGS (1)
  1. MIRENA [Suspect]
     Active Substance: LEVONORGESTREL
     Indication: CONTRACEPTION
     Dosage: 20 MCG/24HR, CONT
     Route: 015
     Dates: start: 20150312, end: 20160112

REACTIONS (5)
  - Genital haemorrhage [None]
  - Embedded device [Recovered/Resolved]
  - Abdominal pain lower [None]
  - Acne [None]
  - Device difficult to use [None]

NARRATIVE: CASE EVENT DATE: 20160107
